FAERS Safety Report 17759793 (Version 1)
Quarter: 2020Q2

REPORT INFORMATION
  Report Type: Spontaneous
  Country: US (occurrence: US)
  Receive Date: 20200507
  Receipt Date: 20200507
  Transmission Date: 20200714
  Serious: No
  Sender: FDA-Public Use
  Company Number: None

PATIENT
  Age: 60 Year
  Sex: Female

DRUGS (1)
  1. ORENCIA [Suspect]
     Active Substance: ABATACEPT
     Dosage: ?          OTHER DOSE:750;OTHER FREQUENCY:OTHER;?
     Route: 042
     Dates: start: 2019

REACTIONS (2)
  - Nail disorder [None]
  - Alopecia [None]

NARRATIVE: CASE EVENT DATE: 20200507
